FAERS Safety Report 24922780 (Version 6)
Quarter: 2025Q3

REPORT INFORMATION
  Report Type: Spontaneous
  Country: JP (occurrence: JP)
  Receive Date: 20250204
  Receipt Date: 20250813
  Transmission Date: 20251021
  Serious: Yes (Hospitalization, Other)
  Sender: ALEXION PHARMACEUTICALS
  Company Number: JP-ASTRAZENECA-240102967_013120_P_1

PATIENT
  Age: 65 Year
  Sex: Female
  Weight: 63 kg

DRUGS (23)
  1. DURVALUMAB [Suspect]
     Active Substance: DURVALUMAB
     Indication: Hepatocellular carcinoma
     Dosage: 1500 MILLIGRAM, Q4W
     Dates: start: 20240807, end: 20240807
  2. DURVALUMAB [Suspect]
     Active Substance: DURVALUMAB
     Route: 065
  3. TREMELIMUMAB [Suspect]
     Active Substance: TREMELIMUMAB
     Indication: Hepatocellular carcinoma
  4. DAPAGLIFLOZIN [Concomitant]
     Active Substance: DAPAGLIFLOZIN
     Indication: Type 2 diabetes mellitus
     Dosage: 10 MILLIGRAM, QD
     Dates: end: 20241208
  5. DAPAGLIFLOZIN [Concomitant]
     Active Substance: DAPAGLIFLOZIN
     Dates: end: 20241208
  6. AMLODIPINE [Concomitant]
     Active Substance: AMLODIPINE BESYLATE
     Indication: Hypertension
     Dosage: 5 MILLIGRAM, QD
     Dates: start: 20240219
  7. AMLODIPINE [Concomitant]
     Active Substance: AMLODIPINE BESYLATE
     Dates: start: 20240219
  8. URSO [Concomitant]
     Active Substance: URSODIOL
     Indication: Metabolic dysfunction-associated steatohepatitis
     Dosage: 200 MILLIGRAM, TID
  9. URSO [Concomitant]
     Active Substance: URSODIOL
  10. OLMESARTAN [Concomitant]
     Active Substance: OLMESARTAN
     Indication: Hypertension
     Dosage: 10 MILLIGRAM, QD
     Dates: start: 20240222
  11. OLMESARTAN [Concomitant]
     Active Substance: OLMESARTAN
     Dosage: 10 MILLIGRAM, QD
     Dates: start: 20240222
  12. REPAGLINIDE [Concomitant]
     Active Substance: REPAGLINIDE
     Indication: Type 2 diabetes mellitus
     Dosage: 0.5 MILLIGRAM, TID
     Dates: end: 20241030
  13. REPAGLINIDE [Concomitant]
     Active Substance: REPAGLINIDE
     Dates: end: 20241030
  14. IMEGLIMIN HYDROCHLORIDE [Concomitant]
     Active Substance: IMEGLIMIN HYDROCHLORIDE
     Indication: Type 2 diabetes mellitus
     Dosage: 500 MILLIGRAM, BID
     Dates: end: 20241208
  15. IMEGLIMIN HYDROCHLORIDE [Concomitant]
     Active Substance: IMEGLIMIN HYDROCHLORIDE
     Dates: end: 20241208
  16. PITAVASTATIN CALCIUM [Concomitant]
     Active Substance: PITAVASTATIN CALCIUM
     Indication: Dyslipidaemia
     Dosage: 1 MILLIGRAM, BID
  17. PITAVASTATIN CALCIUM [Concomitant]
     Active Substance: PITAVASTATIN CALCIUM
     Dosage: 1 MILLIGRAM, BID
  18. JANUVIA [Concomitant]
     Active Substance: SITAGLIPTIN PHOSPHATE
     Indication: Type 2 diabetes mellitus
     Dosage: 50 MILLIGRAM, QD
  19. JANUVIA [Concomitant]
     Active Substance: SITAGLIPTIN PHOSPHATE
  20. HERBALS [Concomitant]
     Active Substance: HERBALS
     Indication: Malaise
     Dosage: 2.5 GRAM, TID
     Dates: start: 20240507
  21. HERBALS [Concomitant]
     Active Substance: HERBALS
     Dates: start: 20240507
  22. DAYVIGO [Concomitant]
     Active Substance: LEMBOREXANT
     Indication: Initial insomnia
     Dosage: 5 MILLIGRAM, QD
  23. DAYVIGO [Concomitant]
     Active Substance: LEMBOREXANT

REACTIONS (3)
  - Immune-mediated neurological disorder [Recovered/Resolved]
  - Asthenia [Recovered/Resolved]
  - Immune-mediated enterocolitis [Recovered/Resolved]

NARRATIVE: CASE EVENT DATE: 20240814
